FAERS Safety Report 23770888 (Version 1)
Quarter: 2024Q2

REPORT INFORMATION
  Report Type: Report from Study
  Country: IN (occurrence: IN)
  Receive Date: 20240423
  Receipt Date: 20240423
  Transmission Date: 20240716
  Serious: Yes (Hospitalization, Other)
  Sender: FDA-Public Use
  Company Number: IN-002147023-NVSC2024IN035561

PATIENT
  Age: 66 Year
  Sex: Female

DRUGS (2)
  1. RIBOCICLIB [Suspect]
     Active Substance: RIBOCICLIB
     Indication: Breast cancer metastatic
     Dosage: 400 MG, QD
     Route: 048
     Dates: start: 20240113
  2. RIBOCICLIB [Suspect]
     Active Substance: RIBOCICLIB
     Dosage: 400 MG, QD
     Route: 048
     Dates: start: 20240405

REACTIONS (5)
  - Essential hypertension [Unknown]
  - Metastases to lung [Unknown]
  - Metastases to liver [Unknown]
  - Oedema peripheral [Unknown]
  - Performance status decreased [Unknown]

NARRATIVE: CASE EVENT DATE: 20240213
